FAERS Safety Report 6294348-6 (Version None)
Quarter: 2009Q3

REPORT INFORMATION
  Report Type: 
  Country: None (occurrence: None)
  Receive Date: 20090803
  Receipt Date: 20090720
  Transmission Date: 20100115
  Serious: Yes (Other)
  Sender: FDA-Public Use
  Company Number: SE-PFIZER INC-2009243330

PATIENT

DRUGS (1)
  1. ZOLOFT [Suspect]
     Dosage: 0.4 ML, 1X/DAY
     Route: 065
     Dates: start: 20080701

REACTIONS (5)
  - CONTUSION [None]
  - FEELING ABNORMAL [None]
  - MUSCULAR WEAKNESS [None]
  - OEDEMA PERIPHERAL [None]
  - VASCULAR RUPTURE [None]
